FAERS Safety Report 5527007-5 (Version None)
Quarter: 2007Q4

REPORT INFORMATION
  Report Type: 
  Country: None (occurrence: None)
  Receive Date: 20071127
  Receipt Date: 20071113
  Transmission Date: 20080405
  Serious: Yes (Hospitalization)
  Sender: FDA-Public Use
  Company Number: DE-RANBAXY-2007RR-06605

PATIENT

DRUGS (3)
  1. FRUSEMIDE [Suspect]
     Indication: HYPERTENSION
     Dosage: 40 MG, UNK
  2. ACE INHIBITORS [Suspect]
     Indication: HYPERTENSION
  3. CAPTOPRIL BASICS 12.5MG [Concomitant]
     Dosage: 12.5 MG, BID

REACTIONS (2)
  - COLITIS ISCHAEMIC [None]
  - COLITIS ULCERATIVE [None]
